FAERS Safety Report 9469108 (Version 1)
Quarter: 2013Q3

REPORT INFORMATION
  Report Type: Spontaneous
  Country: US (occurrence: US)
  Receive Date: 20130821
  Receipt Date: 20130821
  Transmission Date: 20140515
  Serious: Yes (Other)
  Sender: FDA-Public Use
  Company Number: US-PFIZER INC-2013240499

PATIENT
  Age: 43 Year
  Sex: Male
  Weight: 81.63 kg

DRUGS (1)
  1. EFFEXOR XR [Suspect]
     Indication: ANXIETY
     Dosage: 112.5 MG (BY TAKING ONE CAPSULES OF 37.5MG AND ONE CAPSULE OF 75MG ORAL CAPSULE ONCE A DAY), 1X/DAY
     Route: 048

REACTIONS (4)
  - Coeliac disease [Not Recovered/Not Resolved]
  - Diarrhoea [Not Recovered/Not Resolved]
  - Drug ineffective [Unknown]
  - Malabsorption [Unknown]
